FAERS Safety Report 22235950 (Version 2)
Quarter: 2023Q2

REPORT INFORMATION
  Report Type: Spontaneous
  Country: US (occurrence: US)
  Receive Date: 20230420
  Receipt Date: 20230515
  Transmission Date: 20230721
  Serious: No
  Sender: FDA-Public Use
  Company Number: US-BAUSCHBL-2023BNL003264

PATIENT
  Age: 37 Year
  Sex: Male
  Weight: 135.29 kg

DRUGS (1)
  1. VYZULTA [Suspect]
     Active Substance: LATANOPROSTENE BUNOD
     Indication: Product used for unknown indication
     Dosage: TAKING SINCE 3 YEARS
     Route: 065

REACTIONS (5)
  - Instillation site discharge [Unknown]
  - Intraocular pressure increased [Unknown]
  - Instillation site irritation [Unknown]
  - Product quality issue [Unknown]
  - Product availability issue [Unknown]
